FAERS Safety Report 11807773 (Version 1)
Quarter: 2015Q4

REPORT INFORMATION
  Report Type: Spontaneous
  Country: US (occurrence: US)
  Receive Date: 20151207
  Receipt Date: 20151207
  Transmission Date: 20160305
  Serious: No
  Sender: FDA-Public Use
  Company Number: US-BAYER-2015-481393

PATIENT
  Age: 46 Year
  Sex: Male
  Weight: 86.62 kg

DRUGS (3)
  1. ALEVE PM [Suspect]
     Active Substance: DIPHENHYDRAMINE HYDROCHLORIDE\NAPROXEN SODIUM
     Indication: DIZZINESS
  2. ALEVE PM [Suspect]
     Active Substance: DIPHENHYDRAMINE HYDROCHLORIDE\NAPROXEN SODIUM
     Indication: NAUSEA
  3. ALEVE PM [Suspect]
     Active Substance: DIPHENHYDRAMINE HYDROCHLORIDE\NAPROXEN SODIUM
     Indication: HEADACHE
     Dosage: 2 DF, PRN
     Route: 048
     Dates: start: 201511

REACTIONS (2)
  - Drug effect incomplete [None]
  - Therapeutic response unexpected [None]

NARRATIVE: CASE EVENT DATE: 201511
